FAERS Safety Report 5490325-3 (Version None)
Quarter: 2007Q4

REPORT INFORMATION
  Report Type: 
  Country: None (occurrence: None)
  Receive Date: 20071017
  Receipt Date: 20071010
  Transmission Date: 20080405
  Serious: Yes (Hospitalization)
  Sender: FDA-Public Use
  Company Number: 163-21880-07061237

PATIENT
  Age: 85 Year
  Sex: Male

DRUGS (10)
  1. REVLIMID [Suspect]
     Indication: MYELODYSPLASTIC SYNDROME
     Dosage: 5 MG, 1 IN 1 D, ORAL; 5 MG, QHS, ORAL
     Route: 048
     Dates: start: 20070403, end: 20070601
  2. REVLIMID [Suspect]
     Indication: MYELODYSPLASTIC SYNDROME
     Dosage: 5 MG, 1 IN 1 D, ORAL; 5 MG, QHS, ORAL
     Route: 048
     Dates: start: 20070701
  3. COUMADIN [Suspect]
     Indication: ATRIAL FIBRILLATION
     Dosage: ALTERNATE 4 + 5 MG
  4. PREDNISONE TAB [Concomitant]
  5. CARAFATE [Concomitant]
  6. NEXIUM [Concomitant]
  7. MULTIVITAMIN [Concomitant]
  8. TOPROL-XL [Concomitant]
  9. FOLIC ACID [Concomitant]
  10. DIGOXIN [Concomitant]

REACTIONS (3)
  - GASTRITIS [None]
  - HAEMORRHAGE [None]
  - PANCREATITIS [None]
